FAERS Safety Report 7728741-9 (Version None)
Quarter: 2011Q3

REPORT INFORMATION
  Report Type: 
  Country: None (occurrence: None)
  Receive Date: 20110831
  Receipt Date: 20110831
  Transmission Date: 20111222
  Serious: Yes (Hospitalization)
  Sender: FDA-Public Use
  Company Number: None

PATIENT
  Age: 66 Year
  Sex: Male
  Weight: 96.8 kg

DRUGS (2)
  1. DAPSONE [Suspect]
     Dosage: 50 MG BID PO
     Route: 048
     Dates: start: 20110703, end: 20110713
  2. SULFAMETHOXAZOLE AND TRIMETHOPRIM [Suspect]
     Dosage: 1 TAB BID PO
     Route: 048
     Dates: start: 20110705, end: 20110710

REACTIONS (2)
  - HYPOTENSION [None]
  - RENAL FAILURE ACUTE [None]
